FAERS Safety Report 7493717-6 (Version None)
Quarter: 2011Q2

REPORT INFORMATION
  Report Type: 
  Country: None (occurrence: None)
  Receive Date: 20110520
  Receipt Date: 20110509
  Transmission Date: 20111010
  Serious: Yes (Hospitalization)
  Sender: FDA-Public Use
  Company Number: DE-SANOFI-AVENTIS-2011SA015249

PATIENT
  Age: 20 Year
  Sex: Female

DRUGS (3)
  1. OXALIPLATIN [Suspect]
     Route: 042
     Dates: start: 20101206, end: 20101206
  2. OXALIPLATIN [Suspect]
     Route: 042
     Dates: start: 20101025, end: 20101025
  3. CAPECITABINE [Suspect]
     Indication: COLON CANCER
     Route: 048
     Dates: start: 20101021, end: 20101220

REACTIONS (11)
  - NAUSEA [None]
  - WHITE BLOOD CELL COUNT DECREASED [None]
  - ALOPECIA [None]
  - DIARRHOEA [None]
  - PAIN [None]
  - CIRCULATORY COLLAPSE [None]
  - DEHYDRATION [None]
  - VOMITING [None]
  - GASTROINTESTINAL TOXICITY [None]
  - MUCOSAL INFLAMMATION [None]
  - PALMAR-PLANTAR ERYTHRODYSAESTHESIA SYNDROME [None]
